FAERS Safety Report 11910993 (Version 3)
Quarter: 2016Q2

REPORT INFORMATION
  Report Type: Report from Study
  Country: US (occurrence: US)
  Receive Date: 20160112
  Receipt Date: 20160506
  Transmission Date: 20160815
  Serious: No
  Sender: FDA-Public Use
  Company Number: GXBR2015US002713

PATIENT
  Age: 10 Year
  Sex: Male

DRUGS (1)
  1. OMNITROPE [Suspect]
     Active Substance: SOMATROPIN
     Indication: GROWTH HORMONE DEFICIENCY
     Dosage: 1.3 MG, QD
     Route: 065
     Dates: start: 201509

REACTIONS (4)
  - Injection site bruising [Unknown]
  - Injection site rash [Recovered/Resolved]
  - Growth retardation [Not Recovered/Not Resolved]
  - Wrong technique in product usage process [Unknown]

NARRATIVE: CASE EVENT DATE: 20160318
